FAERS Safety Report 10461654 (Version 1)
Quarter: 2014Q3

REPORT INFORMATION
  Report Type: Spontaneous
  Country: US (occurrence: FR)
  Receive Date: 20140918
  Receipt Date: 20140918
  Transmission Date: 20150326
  Serious: Yes (Other)
  Sender: FDA-Public Use
  Company Number: FR-FRI-1000070656

PATIENT
  Sex: Male

DRUGS (1)
  1. CEFTAROLINE FOSAMIL [Suspect]
     Active Substance: CEFTAROLINE FOSAMIL
     Indication: SOFT TISSUE INFECTION
     Dosage: 1200 MG
     Route: 042

REACTIONS (2)
  - Thrombosis in device [Unknown]
  - Medication error [Unknown]

NARRATIVE: CASE EVENT DATE: 2014
